FAERS Safety Report 6781369-X (Version None)
Quarter: 2010Q2

REPORT INFORMATION
  Report Type: 
  Country: None (occurrence: None)
  Receive Date: 20100616
  Receipt Date: 20100607
  Transmission Date: 20101027
  Serious: Yes (Other)
  Sender: FDA-Public Use
  Company Number: GB-1182144

PATIENT
  Sex: Female

DRUGS (2)
  1. MAXIDEX FORTE DROPS [Suspect]
     Dosage: OPHTHALMIC
     Route: 047
  2. INFLIXIMAB (LNFLIXIMAB) [Concomitant]

REACTIONS (4)
  - CYANOSIS [None]
  - ERYTHEMA [None]
  - INFUSION RELATED REACTION [None]
  - MALAISE [None]
